FAERS Safety Report 23512682 (Version 1)
Quarter: 2024Q1

REPORT INFORMATION
  Report Type: Spontaneous
  Country: CA (occurrence: CA)
  Receive Date: 20240212
  Receipt Date: 20240212
  Transmission Date: 20240410
  Serious: Yes (Death, Life-Threatening, Hospitalization, Other)
  Sender: FDA-Public Use
  Company Number: CA-AstraZeneca-2024A031308

PATIENT
  Age: 59 Year
  Sex: Female

DRUGS (1)
  1. TRASTUZUMAB DERUXTECAN [Suspect]
     Active Substance: TRASTUZUMAB DERUXTECAN
     Indication: HER2 positive breast cancer
     Dosage: 502 MG, ONCE EVERY 3 WK
     Route: 042

REACTIONS (5)
  - Anaemia [Fatal]
  - Lung infiltration [Fatal]
  - Respiratory failure [Fatal]
  - Dyspnoea [Fatal]
  - Malignant neoplasm progression [Fatal]
